FAERS Safety Report 16304854 (Version 1)
Quarter: 2019Q2

REPORT INFORMATION
  Report Type: Report from Study
  Country: None (occurrence: BR)
  Receive Date: 20190513
  Receipt Date: 20190513
  Transmission Date: 20190711
  Serious: Yes (Hospitalization, Other)
  Sender: FDA-Public Use
  Company Number: BR-ABBVIE-17K-020-2046564-00

PATIENT
  Age: 49 Year
  Sex: Female
  Weight: 79 kg

DRUGS (6)
  1. DORFLEX [Concomitant]
     Active Substance: CAFFEINE\DIPYRONE\ORPHENADRINE
     Indication: PAIN
  2. HUMIRA [Suspect]
     Active Substance: ADALIMUMAB
     Indication: RHEUMATOID ARTHRITIS
     Route: 058
     Dates: start: 20151001, end: 201611
  3. METHOTREXATE. [Concomitant]
     Active Substance: METHOTREXATE
     Indication: PRODUCT USED FOR UNKNOWN INDICATION
  4. PREDNISONE. [Concomitant]
     Active Substance: PREDNISONE
     Indication: PAIN
  5. HUMIRA [Suspect]
     Active Substance: ADALIMUMAB
     Route: 058
     Dates: start: 201705
  6. DICLOFENAC [Concomitant]
     Active Substance: DICLOFENAC
     Indication: PAIN

REACTIONS (16)
  - Musculoskeletal disorder [Recovered/Resolved]
  - Pain in extremity [Unknown]
  - Pain [Unknown]
  - General physical health deterioration [Recovering/Resolving]
  - Arthropathy [Recovering/Resolving]
  - Musculoskeletal pain [Recovered/Resolved]
  - Mobility decreased [Unknown]
  - Osteoarthritis [Recovering/Resolving]
  - Pruritus [Not Recovered/Not Resolved]
  - Injection site swelling [Unknown]
  - Dysstasia [Unknown]
  - Gait disturbance [Unknown]
  - Overweight [Unknown]
  - Insomnia [Unknown]
  - Injection site pain [Recovered/Resolved]
  - Musculoskeletal stiffness [Recovered/Resolved]

NARRATIVE: CASE EVENT DATE: 20170525
